FAERS Safety Report 9231648 (Version 2)
Quarter: 2013Q2

REPORT INFORMATION
  Report Type: Spontaneous
  Country: US (occurrence: US)
  Receive Date: 20130415
  Receipt Date: 20130429
  Transmission Date: 20140414
  Serious: Yes (Other)
  Sender: FDA-Public Use
  Company Number: US-TEVA-397091USA

PATIENT
  Sex: Male
  Weight: 95.34 kg

DRUGS (9)
  1. NUVIGIL [Suspect]
     Indication: SLEEP APNOEA SYNDROME
     Route: 048
     Dates: start: 20130221
  2. NUVIGIL [Suspect]
     Route: 048
  3. NUVIGIL [Suspect]
     Route: 048
     Dates: start: 20130321
  4. ALLOPURINOL [Concomitant]
     Indication: GOUT
  5. FLOMAX [Concomitant]
     Indication: REPRODUCTIVE TRACT DISORDER
  6. CLONIDINE [Concomitant]
     Indication: SLEEP APNOEA SYNDROME
  7. CLONIDINE [Concomitant]
     Indication: ANXIETY
  8. MIRAPEX [Concomitant]
     Indication: RESTLESS LEGS SYNDROME
  9. PRISTIQ [Concomitant]
     Indication: MAJOR DEPRESSION
     Dosage: 100 MILLIGRAM DAILY;

REACTIONS (12)
  - Psychotic disorder [Recovered/Resolved]
  - Rash [Recovered/Resolved]
  - Rash [Recovered/Resolved]
  - Amnesia [Not Recovered/Not Resolved]
  - Disorientation [Unknown]
  - Pruritus [Not Recovered/Not Resolved]
  - Arthralgia [Not Recovered/Not Resolved]
  - Insomnia [Not Recovered/Not Resolved]
  - Anxiety [Not Recovered/Not Resolved]
  - Gait disturbance [Not Recovered/Not Resolved]
  - Libido decreased [Not Recovered/Not Resolved]
  - Restless legs syndrome [Not Recovered/Not Resolved]
